FAERS Safety Report 6300789-0 (Version None)
Quarter: 2009Q3

REPORT INFORMATION
  Report Type: 
  Country: None (occurrence: None)
  Receive Date: 20090807
  Receipt Date: 20090727
  Transmission Date: 20100115
  Serious: Yes (Life-Threatening, Hospitalization, Other)
  Sender: FDA-Public Use
  Company Number: DE-RANBAXY-2008RR-19080

PATIENT
  Age: 52 Year
  Sex: Male
  Weight: 104 kg

DRUGS (6)
  1. PARACETAMOL [Suspect]
     Indication: BACK PAIN
     Dosage: 500 MG, QD
     Route: 048
     Dates: start: 20080215, end: 20080222
  2. VOLTAREN [Suspect]
     Indication: BACK PAIN
     Dosage: 75 MG
     Route: 048
     Dates: start: 20080201, end: 20080212
  3. EUTHYROX, MERCK [Concomitant]
     Indication: HYPOTHYROIDISM
     Dosage: 100 UG
     Route: 048
     Dates: start: 19900101, end: 20080221
  4. LISINOPRIL COMP, RATIOPHARM [Concomitant]
     Indication: HYPERTENSION
     Dosage: 1 DF, QD
     Route: 048
     Dates: start: 20060101, end: 20080221
  5. LISINOPRIL [Concomitant]
     Indication: HYPERTENSION
     Dosage: 10 MG, QD
     Route: 048
     Dates: start: 20040101, end: 20080221
  6. NEXIUM MUPS, ASTRAZENECA [Concomitant]
     Dosage: 20 MG, 1/WEEK
     Route: 049
     Dates: start: 20070601, end: 20080221

REACTIONS (1)
  - PANCREATITIS ACUTE [None]
